FAERS Safety Report 25817929 (Version 1)
Quarter: 2025Q3

REPORT INFORMATION
  Report Type: Spontaneous
  Country: US (occurrence: US)
  Receive Date: 20250918
  Receipt Date: 20250918
  Transmission Date: 20251021
  Serious: No
  Sender: ITALFARMACO SPA
  Company Number: US-ITALFARMACO SPA-2184780

PATIENT
  Age: 12 Year
  Sex: Male
  Weight: 53.07 kg

DRUGS (10)
  1. DUVYZAT [Suspect]
     Active Substance: GIVINOSTAT
     Dates: start: 20250813
  2. HYDROCORTISONE ACETATE [Concomitant]
     Active Substance: HYDROCORTISONE ACETATE
  3. FLUTICASONE PROPIONATE [Concomitant]
     Active Substance: FLUTICASONE PROPIONATE
  4. CETIRIZINE [Concomitant]
     Active Substance: CETIRIZINE HYDROCHLORIDE
  5. VITAMIN D3 [Concomitant]
     Active Substance: CHOLECALCIFEROL
  6. SOLU-CORTEF [Concomitant]
     Active Substance: HYDROCORTISONE SODIUM SUCCINATE
  7. FAMOTIDINE [Concomitant]
     Active Substance: FAMOTIDINE
  8. LISINOPRIL [Concomitant]
     Active Substance: LISINOPRIL
  9. EPLERENONE [Concomitant]
     Active Substance: EPLERENONE
  10. SYMBICORT [Concomitant]
     Active Substance: BUDESONIDE\FORMOTEROL FUMARATE DIHYDRATE

REACTIONS (7)
  - Burning sensation [Unknown]
  - Platelet count decreased [Unknown]
  - Blood triglycerides increased [Unknown]
  - Paraesthesia [Unknown]
  - Nausea [Unknown]
  - Abdominal pain upper [Unknown]
  - Discomfort [Unknown]
